FAERS Safety Report 10444192 (Version 2)
Quarter: 2014Q3

REPORT INFORMATION
  Report Type: Spontaneous
  Country: NL (occurrence: NL)
  Receive Date: 20140910
  Receipt Date: 20140910
  Transmission Date: 20150326
  Serious: Yes (Life-Threatening, Hospitalization)
  Sender: FDA-Public Use
  Company Number: NL-NOVOPROD-420539

PATIENT
  Sex: Female

DRUGS (1)
  1. ACTRAPID [Suspect]
     Active Substance: INSULIN HUMAN
     Indication: BLOOD GLUCOSE ABNORMAL
     Dosage: UNKNOWN
     Route: 058

REACTIONS (2)
  - Coma [Unknown]
  - Incorrect dose administered [Unknown]

NARRATIVE: CASE EVENT DATE: 201210
